FAERS Safety Report 23161814 (Version 1)
Quarter: 2023Q4

REPORT INFORMATION
  Report Type: Spontaneous
  Country: US (occurrence: US)
  Receive Date: 20231108
  Receipt Date: 20231108
  Transmission Date: 20240109
  Serious: Yes (Hospitalization, Other)
  Sender: FDA-Public Use
  Company Number: US-009507513-2311USA001233

PATIENT
  Age: 56 Year
  Sex: Female

DRUGS (8)
  1. KEYTRUDA [Suspect]
     Active Substance: PEMBROLIZUMAB
     Indication: Nasal sinus cancer
     Dosage: 2 MILLIGRAM/KILOGRAM, Q3W (4 CYCLES)
     Dates: start: 20170503, end: 20170705
  2. KEYTRUDA [Suspect]
     Active Substance: PEMBROLIZUMAB
     Dosage: 2 MILLIGRAM/KILOGRAM, Q3W
     Dates: start: 20170726, end: 20170726
  3. KEYTRUDA [Suspect]
     Active Substance: PEMBROLIZUMAB
     Dosage: 2 MILLIGRAM/KILOGRAM, Q3W (6TH AND 7TH CYCLES)
     Dates: start: 20170816, end: 20170908
  4. KEYTRUDA [Suspect]
     Active Substance: PEMBROLIZUMAB
     Dosage: 2 MILLIGRAM/KILOGRAM, Q3W
     Dates: start: 20181206, end: 20190228
  5. CELECOXIB [Suspect]
     Active Substance: CELECOXIB
     Indication: Nasal sinus cancer
     Dosage: 200 MILLIGRAM, QD
     Dates: start: 20170726, end: 20170726
  6. CELECOXIB [Suspect]
     Active Substance: CELECOXIB
     Dosage: 200 MILLIGRAM, QD
     Dates: start: 20170816, end: 20170908
  7. CELECOXIB [Suspect]
     Active Substance: CELECOXIB
     Dosage: 200 MILLIGRAM, QD
     Dates: start: 2017
  8. IPILIMUMAB [Suspect]
     Active Substance: IPILIMUMAB
     Indication: Nasal sinus cancer
     Dosage: 1 MILLIGRAM/KILOGRAM, Q3W
     Dates: start: 20170816, end: 20170908

REACTIONS (5)
  - Hepatic failure [Recovering/Resolving]
  - Meningitis aseptic [Unknown]
  - Drug resistance [Recovered/Resolved]
  - Rash pruritic [Unknown]
  - Off label use [Unknown]

NARRATIVE: CASE EVENT DATE: 20170101
